FAERS Safety Report 16763360 (Version 1)
Quarter: 2019Q3

REPORT INFORMATION
  Report Type: Spontaneous
  Country: GB (occurrence: GB)
  Receive Date: 20190902
  Receipt Date: 20190902
  Transmission Date: 20191005
  Serious: Yes (Other)
  Sender: FDA-Public Use
  Company Number: GB-SUN PHARMACEUTICAL INDUSTRIES LTD-2019RR-219235

PATIENT
  Age: 16 Year
  Sex: Female
  Weight: 53 kg

DRUGS (7)
  1. LEVEMIR [Concomitant]
     Active Substance: INSULIN DETEMIR
     Indication: PRODUCT USED FOR UNKNOWN INDICATION
     Dosage: ()
     Route: 065
  2. NOVORAPID [Concomitant]
     Active Substance: INSULIN ASPART
     Indication: PRODUCT USED FOR UNKNOWN INDICATION
     Dosage: ()
     Route: 065
  3. DEPO-PROVERA [Concomitant]
     Active Substance: MEDROXYPROGESTERONE ACETATE
     Indication: PRODUCT USED FOR UNKNOWN INDICATION
     Dosage: ()
     Route: 065
  4. ERYTHROMYCIN. [Concomitant]
     Active Substance: ERYTHROMYCIN
     Indication: SKIN INFECTION
     Dosage: ()
     Route: 065
  5. ISOTRETINOIN. [Suspect]
     Active Substance: ISOTRETINOIN
     Indication: ACNE
     Dosage: TITRATED UP FROM 20MG TO 40MG OVER THREE MONTHS
     Route: 048
     Dates: start: 201811
  6. ISOTRETINOIN. [Suspect]
     Active Substance: ISOTRETINOIN
     Dosage: TITRATED UP FROM 20MG TO 40MG OVER THREE MONTHS
     Route: 048
  7. ISOTRETINOIN. [Suspect]
     Active Substance: ISOTRETINOIN
     Dosage: TITRATED UP FROM 20MG TO 40MG OVER THREE MONTHS
     Route: 048
     Dates: start: 201811

REACTIONS (9)
  - Tearfulness [Recovered/Resolved]
  - Asthenia [Recovering/Resolving]
  - Insomnia [Recovered/Resolved]
  - Apathy [Recovered/Resolved]
  - Irritability [Recovering/Resolving]
  - Depression [Recovering/Resolving]
  - Personality change [Recovering/Resolving]
  - Social avoidant behaviour [Recovered/Resolved]
  - Mood swings [Recovered/Resolved]

NARRATIVE: CASE EVENT DATE: 201901
